FAERS Safety Report 4342630-1 (Version None)
Quarter: 2004Q1

REPORT INFORMATION
  Report Type: 
  Country: None (occurrence: None)
  Receive Date: 20040213
  Receipt Date: 20031105
  Transmission Date: 20041129
  Serious: Yes (Other)
  Sender: FDA-Public Use
  Company Number: 350920

PATIENT
  Sex: Female

DRUGS (2)
  1. PEGASYS [Suspect]
     Indication: HEPATITIS C
     Dosage: 180 MCG 1 PER 1 WEEK SUBCUTANEOUS
     Route: 058
     Dates: start: 20030715
  2. COPEGUS [Suspect]
     Indication: HEPATITIS C
     Dosage: 1000 MG DAILY,ORAL
     Route: 048
     Dates: start: 20030715

REACTIONS (1)
  - THROMBOCYTOPENIA [None]
